FAERS Safety Report 4376960-4 (Version None)
Quarter: 2004Q2

REPORT INFORMATION
  Report Type: 
  Country: None (occurrence: None)
  Receive Date: 20040614
  Receipt Date: 20040521
  Transmission Date: 20050107
  Serious: Yes (Hospitalization)
  Sender: FDA-Public Use
  Company Number: US-AMGEN-US077455

PATIENT
  Sex: Female

DRUGS (12)
  1. ENBREL [Suspect]
     Indication: RHEUMATOID ARTHRITIS
     Route: 058
     Dates: start: 20030313, end: 20030724
  2. METHOTREXATE [Concomitant]
     Route: 058
     Dates: start: 20010719
  3. SULFASALAZINE [Concomitant]
     Route: 048
     Dates: start: 20020523
  4. CELEBREX [Concomitant]
     Dates: start: 20010621
  5. NEURONTIN [Concomitant]
     Dates: start: 20010301
  6. AMITRIPTYLINE HCL [Concomitant]
     Dates: start: 20010501
  7. ACTONEL (PROCTOR + GAMBLE) [Concomitant]
     Dates: start: 20010712
  8. LOVENOX [Concomitant]
  9. LOPRESSOR [Concomitant]
  10. CLONIDINE HCL [Concomitant]
  11. DEMECLOCYCLINE [Concomitant]
  12. SENOKOT [Concomitant]

REACTIONS (1)
  - GUILLAIN-BARRE SYNDROME [None]
